FAERS Safety Report 17220036 (Version 3)
Quarter: 2020Q1

REPORT INFORMATION
  Report Type: Spontaneous
  Country: US (occurrence: US)
  Receive Date: 20191231
  Receipt Date: 20200331
  Transmission Date: 20200409
  Serious: Yes (Other)
  Sender: FDA-Public Use
  Company Number: US-SA-2019SA359635

PATIENT
  Age: 47 Year
  Sex: Female

DRUGS (1)
  1. DUPIXENT [Suspect]
     Active Substance: DUPILUMAB
     Indication: ASTHMA
     Dosage: 300 MG, QOW
     Route: 058
     Dates: start: 20190820

REACTIONS (4)
  - Neck pain [Unknown]
  - Paraesthesia [Unknown]
  - Skin exfoliation [Unknown]
  - Inflammation [Unknown]

NARRATIVE: CASE EVENT DATE: 2019
